FAERS Safety Report 5239798-1 (Version None)
Quarter: 2007Q1

REPORT INFORMATION
  Report Type: 
  Country: None (occurrence: None)
  Receive Date: 20070216
  Receipt Date: 20070208
  Transmission Date: 20070707
  Serious: Yes (Other)
  Sender: FDA-Public Use
  Company Number: US-ELI_LILLY_AND_COMPANY-US200701005718

PATIENT
  Age: 66 Year
  Sex: Female

DRUGS (5)
  1. ALIMTA [Suspect]
     Indication: NON-SMALL CELL LUNG CANCER
     Dosage: 500 MG/KG, UNK
     Dates: start: 20070125
  2. AVASTIN [Concomitant]
     Indication: NON-SMALL CELL LUNG CANCER
     Dosage: 15 MG/KG, UNK
  3. VITAMIN B-12 [Concomitant]
     Indication: SUPPLEMENTATION THERAPY
  4. FOLIC ACID [Concomitant]
     Indication: SUPPLEMENTATION THERAPY
  5. DEXAMETHASONE [Concomitant]
     Indication: SUPPLEMENTATION THERAPY

REACTIONS (1)
  - RASH [None]
